FAERS Safety Report 6112878-4 (Version None)
Quarter: 2009Q1

REPORT INFORMATION
  Report Type: 
  Country: None (occurrence: None)
  Receive Date: 20090312
  Receipt Date: 20090306
  Transmission Date: 20090719
  Serious: Yes (Other)
  Sender: FDA-Public Use
  Company Number: PHHY2009ES08185

PATIENT
  Age: 73 Year
  Sex: Male

DRUGS (5)
  1. RASILEZ [Suspect]
     Indication: HYPERTENSION
     Dosage: 300 MG, QD
     Route: 048
     Dates: start: 20081117, end: 20081231
  2. CARDURA [Suspect]
     Indication: HYPERTENSION
     Dosage: 8 MG, QD
     Route: 048
     Dates: start: 20040101, end: 20081201
  3. OPENVAS (OLMESARTAN MEDOXOMIL) [Suspect]
     Dosage: UNK
     Route: 048
     Dates: start: 20040101
  4. SUTRIL [Suspect]
  5. ADIRO [Concomitant]
     Indication: HYPERTENSION
     Dosage: 10 MG, QD
     Route: 048
     Dates: start: 20000101

REACTIONS (2)
  - HYPERTENSION [None]
  - PERIPHERAL COLDNESS [None]
